FAERS Safety Report 10402457 (Version 1)
Quarter: 2014Q3

REPORT INFORMATION
  Report Type: Spontaneous
  Country: IN (occurrence: IN)
  Receive Date: 20140822
  Receipt Date: 20140822
  Transmission Date: 20150326
  Serious: Yes (Other)
  Sender: FDA-Public Use
  Company Number: IN-SA-2014SA112934

PATIENT
  Age: 51 Year
  Sex: Female
  Weight: 65 kg

DRUGS (1)
  1. ALLEGRA [Suspect]
     Active Substance: FEXOFENADINE HYDROCHLORIDE
     Indication: URTICARIA
     Route: 048
     Dates: start: 20140815, end: 20140816

REACTIONS (1)
  - Drug eruption [Recovered/Resolved with Sequelae]

NARRATIVE: CASE EVENT DATE: 20140815
